FAERS Safety Report 6425014-1 (Version None)
Quarter: 2009Q4

REPORT INFORMATION
  Report Type: 
  Country: None (occurrence: None)
  Receive Date: 20091103
  Receipt Date: 20091102
  Transmission Date: 20100525
  Serious: Yes (Hospitalization)
  Sender: FDA-Public Use
  Company Number: GXKR2009DE11941

PATIENT
  Age: 39 Year
  Sex: Female

DRUGS (9)
  1. FUROSEMIDE (NGX) [Suspect]
     Dosage: 80 MG, QD
     Route: 048
     Dates: start: 20070527, end: 20070627
  2. ERGENYL CHRONO [Interacting]
     Dosage: 1000 MG, QD
     Dates: start: 20070529, end: 20070627
  3. IMPROMEN [Interacting]
     Dosage: 10 MG, QD
     Dates: start: 20070527, end: 20070627
  4. LEPONEX ^WANDER^ [Interacting]
     Dosage: 150 MG, QD
     Dates: start: 20070527, end: 20070627
  5. ABILIFY [Concomitant]
  6. ERGENYL CHRONO [Concomitant]
  7. FOLSAN [Concomitant]
  8. GASTROZEPIN [Concomitant]
  9. PANTOPRAZOLE SODIUM [Concomitant]

REACTIONS (1)
  - ELECTROCARDIOGRAM QT PROLONGED [None]
